FAERS Safety Report 9514129 (Version 2)
Quarter: 2013Q4

REPORT INFORMATION
  Report Type: Report from Study
  Country: DE (occurrence: DE)
  Receive Date: 20130910
  Receipt Date: 20131001
  Transmission Date: 20140711
  Serious: Yes (Hospitalization)
  Sender: FDA-Public Use
  Company Number: DE-ROCHE-1270275

PATIENT
  Age: 51 Year
  Sex: Female
  Weight: 59 kg

DRUGS (8)
  1. TRASTUZUMAB [Suspect]
     Indication: BREAST CANCER
     Dosage: LAST DOSE PRIOR TO SAE: 22/AUG/2013
     Route: 042
     Dates: start: 20130430
  2. EPIRUBICIN [Suspect]
     Indication: BREAST CANCER
     Dosage: LAST DOSE PRIOR TO SAE: 22/AUG/2013
     Route: 042
     Dates: start: 20130801
  3. CYCLOPHOSPHAMIDE [Suspect]
     Indication: BREAST CANCER
     Dosage: LAST DOSE PRIOR TO SAE: 22/AUG/2013
     Route: 042
     Dates: start: 20130801
  4. ALOXI [Concomitant]
     Route: 065
     Dates: start: 20130822, end: 20130822
  5. DEXAMETHASONE [Concomitant]
     Route: 065
     Dates: start: 20130822, end: 20130822
  6. UROMITEXAN [Concomitant]
     Route: 065
     Dates: start: 20130822, end: 20130822
  7. FORTECORTIN [Concomitant]
     Route: 065
     Dates: start: 20130823, end: 20130824
  8. EMEND [Concomitant]
     Dosage: 125/80 MG
     Route: 065
     Dates: start: 20130822, end: 20130824

REACTIONS (1)
  - General physical health deterioration [Recovered/Resolved]
